FAERS Safety Report 26167833 (Version 1)
Quarter: 2025Q4

REPORT INFORMATION
  Report Type: Spontaneous
  Country: US (occurrence: US)
  Receive Date: 20251217
  Receipt Date: 20251217
  Transmission Date: 20260118
  Serious: No
  Sender: STALLERGENES
  Company Number: US-STALCOR-2025-AER-00611

PATIENT
  Sex: Male

DRUGS (15)
  1. BLUE CRAB [Suspect]
     Active Substance: BLUE CRAB
     Indication: Skin test
  2. OYSTER [Suspect]
     Active Substance: OYSTER, UNSPECIFIED
     Indication: Skin test
  3. NORTHERN BROWN SHRIMP [Suspect]
     Active Substance: NORTHERN BROWN SHRIMP
     Indication: Skin test
  4. LOBSTER [Suspect]
     Active Substance: LOBSTER, UNSPECIFIED
     Indication: Skin test
  5. SCALLOPS [Suspect]
     Active Substance: SEA SCALLOP
     Indication: Skin test
  6. CLAM [Suspect]
     Active Substance: QUAHOG, UNSPECIFIED
     Indication: Skin test
  7. TUNA [Suspect]
     Active Substance: TUNA, UNSPECIFIED
     Indication: Skin test
  8. TROUT [Suspect]
     Active Substance: TROUT, UNSPECIFIED
     Indication: Skin test
  9. SALMON [Suspect]
     Active Substance: SALMON, UNSPECIFIED
     Indication: Skin test
  10. PERCH [Suspect]
     Active Substance: PERCH, UNSPECIFIED
     Indication: Skin test
  11. MACKEREL [Suspect]
     Active Substance: MACKEREL, UNSPECIFIED
     Indication: Skin test
  12. FLOUNDER [Suspect]
     Active Substance: FLOUNDER
     Indication: Skin test
  13. COD [Suspect]
     Active Substance: ATLANTIC COD
     Indication: Skin test
  14. CATFISH (WHITE CATFISH) [Suspect]
     Active Substance: WHITE CATFISH
     Indication: Skin test
  15. BLACK BASS [Suspect]
     Active Substance: LARGEMOUTH BASS
     Indication: Skin test

REACTIONS (2)
  - Drug ineffective [Unknown]
  - No adverse event [Unknown]
